FAERS Safety Report 8585961-1 (Version None)
Quarter: 2012Q3

REPORT INFORMATION
  Report Type: 
  Country: None (occurrence: None)
  Receive Date: 20120810
  Receipt Date: 20120801
  Transmission Date: 20120928
  Serious: Yes (Other)
  Sender: FDA-Public Use
  Company Number: US-CELGENEUS-163-21880-12080223

PATIENT
  Sex: Female
  Weight: 66.284 kg

DRUGS (8)
  1. REVLIMID [Suspect]
     Indication: MULTIPLE MYELOMA
     Dosage: 25 MILLIGRAM
     Route: 048
     Dates: start: 20111013
  2. DOXYCYCLINE HCL [Concomitant]
     Route: 065
  3. ATENOLOL [Concomitant]
     Route: 065
  4. OMEPRAZOLE [Concomitant]
     Route: 065
  5. DEXAMETHASONE [Concomitant]
     Route: 065
  6. HYDROCODONE BITARTRATE AND ACETAMINOPHEN [Concomitant]
     Route: 065
  7. ASPIRIN [Concomitant]
     Route: 065
  8. TRIAMTERENE AND HYDROCHLOROTHIAZIDE [Concomitant]
     Route: 065

REACTIONS (3)
  - HYPOKALAEMIA [None]
  - HYPONATRAEMIA [None]
  - OEDEMA PERIPHERAL [None]
